FAERS Safety Report 19973377 (Version 1)
Quarter: 2021Q4

REPORT INFORMATION
  Report Type: Spontaneous
  Country: US (occurrence: US)
  Receive Date: 20211020
  Receipt Date: 20211020
  Transmission Date: 20220303
  Serious: Yes (Hospitalization)
  Sender: FDA-Public Use
  Company Number: US-NOVARTISPH-NVSC2021US237358

PATIENT
  Age: 54 Year
  Sex: Male
  Weight: 89.81 kg

DRUGS (1)
  1. ENTRESTO [Suspect]
     Active Substance: SACUBITRIL\VALSARTAN
     Indication: Cardiac failure
     Dosage: 24.26 MG (SACUBITRIL 24.3 MG, VALSARTAN 25.7 MG), BID
     Route: 048
     Dates: start: 20210610, end: 20210817

REACTIONS (3)
  - Lip swelling [Recovered/Resolved]
  - Pharyngeal swelling [Recovered/Resolved]
  - Respiratory distress [Recovered/Resolved]

NARRATIVE: CASE EVENT DATE: 20210817
